FAERS Safety Report 14477548 (Version 2)
Quarter: 2018Q3

REPORT INFORMATION
  Report Type: Report from Study
  Country: US (occurrence: US)
  Receive Date: 20180201
  Receipt Date: 20180723
  Transmission Date: 20181010
  Serious: No
  Sender: FDA-Public Use
  Company Number: US-EXELIXIS-CABO-17010772

PATIENT
  Sex: Male

DRUGS (8)
  1. COMETRIQ [Suspect]
     Active Substance: CABOZANTINIB S-MALATE
     Indication: THYROID CANCER
     Dosage: 140 MG, QD
     Route: 048
     Dates: start: 20160506, end: 201606
  2. COMETRIQ [Suspect]
     Active Substance: CABOZANTINIB S-MALATE
     Dosage: 40 MG, QD
     Route: 048
     Dates: start: 20170930, end: 2017
  3. LISINOPRIL. [Concomitant]
     Active Substance: LISINOPRIL
  4. LOMOTIL [Concomitant]
     Active Substance: ATROPINE SULFATE\DIPHENOXYLATE HYDROCHLORIDE
  5. HYDROMORPHONE [Concomitant]
     Active Substance: HYDROMORPHONE
  6. PULMICORT TURBUHALER [Concomitant]
     Active Substance: BUDESONIDE
  7. SYNTHROID [Concomitant]
     Active Substance: LEVOTHYROXINE SODIUM
  8. ZANTAC [Concomitant]
     Active Substance: RANITIDINE HYDROCHLORIDE

REACTIONS (6)
  - Dizziness [Unknown]
  - Malignant neoplasm progression [Not Recovered/Not Resolved]
  - Neoplasm [Unknown]
  - Drug ineffective [Unknown]
  - Large intestine polyp [Unknown]
  - Throat irritation [Unknown]
